FAERS Safety Report 17537513 (Version 1)
Quarter: 2020Q1

REPORT INFORMATION
  Report Type: Spontaneous
  Country: JP (occurrence: JP)
  Receive Date: 20200313
  Receipt Date: 20200313
  Transmission Date: 20200409
  Serious: Yes (Hospitalization)
  Sender: FDA-Public Use
  Company Number: JP-JNJFOC-20200128684

PATIENT
  Age: 23 Year
  Sex: Female

DRUGS (2)
  1. TOPINA [Suspect]
     Active Substance: TOPIRAMATE
     Indication: FRONTAL LOBE EPILEPSY
     Route: 048
  2. TEGRETOL [Suspect]
     Active Substance: CARBAMAZEPINE
     Indication: FRONTAL LOBE EPILEPSY
     Route: 048
     Dates: start: 2008

REACTIONS (1)
  - Anaemia megaloblastic [Recovered/Resolved]

NARRATIVE: CASE EVENT DATE: 20190130
